FAERS Safety Report 7203034-7 (Version None)
Quarter: 2010Q4

REPORT INFORMATION
  Report Type: 
  Country: None (occurrence: None)
  Receive Date: 20101229
  Receipt Date: 20101221
  Transmission Date: 20110411
  Serious: Yes (Death, Hospitalization, Other)
  Sender: FDA-Public Use
  Company Number: JP-AMGEN-KDC437223

PATIENT

DRUGS (17)
  1. PANITUMUMAB [Suspect]
     Indication: COLORECTAL CANCER
     Dosage: 6 MG/KG, Q2WK
     Route: 041
     Dates: start: 20100720, end: 20101019
  2. IRINOTECAN HYDROCHLORIDE [Suspect]
     Indication: COLORECTAL CANCER
     Dosage: 100 MG, Q2WK
     Route: 041
     Dates: start: 20100720
  3. FLUOROURACIL [Suspect]
     Indication: COLORECTAL CANCER
     Dosage: 450 MG, Q2WK
     Route: 040
     Dates: start: 20100720
  4. FLUOROURACIL [Suspect]
     Dosage: 2500 MG, Q2WK
     Route: 041
     Dates: start: 20100720
  5. CALCIUM LEVOFOLINATE [Suspect]
     Indication: COLORECTAL CANCER
     Dosage: 240 MG, Q2WK
     Route: 041
     Dates: start: 20100720
  6. DECADRON [Concomitant]
     Route: 042
  7. ALOXI [Concomitant]
     Route: 042
  8. NORVASC [Concomitant]
     Route: 048
  9. GASTROM [Concomitant]
     Dosage: UNK UNK, UNK
     Route: 048
  10. GASTROM [Concomitant]
     Route: 048
  11. ULCERLMIN [Concomitant]
     Dosage: UNK UNK, UNK
     Route: 048
  12. ULCERLMIN [Concomitant]
     Route: 048
  13. PROMAC D [Concomitant]
     Dosage: UNK UNK, UNK
     Route: 048
  14. PROMAC D [Concomitant]
     Route: 048
  15. BIOFERMIN R [Concomitant]
     Route: 048
  16. PROTECADIN [Concomitant]
     Dosage: UNK UNK, UNK
     Route: 048
  17. PROTECADIN [Concomitant]
     Route: 048

REACTIONS (8)
  - ANAEMIA [None]
  - COLORECTAL CANCER [None]
  - DECREASED APPETITE [None]
  - HYPERCALCAEMIA [None]
  - NEUTROPHIL COUNT DECREASED [None]
  - RASH [None]
  - RENAL IMPAIRMENT [None]
  - STOMATITIS [None]
